FAERS Safety Report 7587466-3 (Version None)
Quarter: 2011Q3

REPORT INFORMATION
  Report Type: 
  Country: None (occurrence: None)
  Receive Date: 20110704
  Receipt Date: 20110623
  Transmission Date: 20111222
  Serious: No
  Sender: FDA-Public Use
  Company Number: US-BIOGENIDEC-2011BI023505

PATIENT
  Age: 45 Year
  Sex: Female

DRUGS (2)
  1. AVONEX [Suspect]
     Indication: MULTIPLE SCLEROSIS
     Route: 030
     Dates: start: 20091204
  2. AVONEX [Suspect]
     Route: 030
     Dates: start: 19980201, end: 20070529

REACTIONS (3)
  - GENERAL SYMPTOM [None]
  - BLINDNESS [None]
  - BALANCE DISORDER [None]
